FAERS Safety Report 10032128 (Version 2)
Quarter: 2014Q1

REPORT INFORMATION
  Report Type: Report from Study
  Country: JP (occurrence: JP)
  Receive Date: 20140324
  Receipt Date: 20140324
  Transmission Date: 20141002
  Serious: Yes (Death, Other)
  Sender: FDA-Public Use
  Company Number: JP-SANOFI-AVENTIS-2010SA064489

PATIENT
  Age: 64 Year
  Sex: Male
  Weight: 74 kg

DRUGS (52)
  1. FLUOROURACIL [Suspect]
     Indication: COLORECTAL CANCER
     Dosage: CONTINUOUS INFUSION
     Route: 065
     Dates: start: 20080328, end: 20080328
  2. FLUOROURACIL [Suspect]
     Indication: COLORECTAL CANCER
     Dosage: CONTINUOUS INFUSION
     Route: 065
     Dates: start: 20080411, end: 20080411
  3. FLUOROURACIL [Suspect]
     Indication: COLORECTAL CANCER
     Dosage: CONTINUOUS INFUSION
     Route: 065
     Dates: start: 20080425, end: 20080425
  4. FLUOROURACIL [Suspect]
     Indication: COLORECTAL CANCER
     Dosage: CONTINUOUS INFUSION
     Route: 065
  5. FLUOROURACIL [Suspect]
     Indication: COLORECTAL CANCER
     Dosage: BOLUS
     Route: 065
     Dates: start: 20080328, end: 20080328
  6. FLUOROURACIL [Suspect]
     Indication: COLORECTAL CANCER
     Dosage: BOLUS
     Route: 065
     Dates: start: 20080425, end: 20080425
  7. FLUOROURACIL [Suspect]
     Indication: COLORECTAL CANCER
     Dosage: BOLUS
     Route: 065
  8. FLUOROURACIL [Suspect]
     Indication: COLORECTAL CANCER
     Dosage: BOLUS
     Route: 065
     Dates: start: 20080801, end: 20080815
  9. FLUOROURACIL [Suspect]
     Indication: COLORECTAL CANCER
     Dosage: BOLUS
     Route: 065
     Dates: start: 20080411, end: 20080411
  10. FLUOROURACIL [Suspect]
     Indication: COLORECTAL CANCER
     Dosage: CONTINUOUS INFUSION
     Route: 065
     Dates: start: 20080801, end: 20080815
  11. ELPLAT [Suspect]
     Indication: COLORECTAL CANCER
     Route: 041
     Dates: start: 20080328, end: 20080328
  12. ELPLAT [Suspect]
     Indication: COLORECTAL CANCER
     Route: 041
     Dates: start: 20080411, end: 20080411
  13. ELPLAT [Suspect]
     Indication: COLORECTAL CANCER
     Route: 041
     Dates: start: 20080425, end: 20080425
  14. ELPLAT [Suspect]
     Indication: COLORECTAL CANCER
     Route: 041
     Dates: start: 20080509, end: 20080509
  15. ELPLAT [Suspect]
     Indication: COLORECTAL CANCER
     Route: 041
     Dates: start: 20080523, end: 20080523
  16. ELPLAT [Suspect]
     Indication: COLORECTAL CANCER
     Route: 041
     Dates: start: 20080606, end: 20080606
  17. ELPLAT [Suspect]
     Indication: COLORECTAL CANCER
     Route: 041
     Dates: start: 20080620, end: 20080620
  18. ELPLAT [Suspect]
     Indication: COLORECTAL CANCER
     Route: 041
     Dates: start: 20080704, end: 20080704
  19. ELPLAT [Suspect]
     Indication: COLORECTAL CANCER
     Route: 041
     Dates: start: 20080718, end: 20080718
  20. ELPLAT [Suspect]
     Indication: COLORECTAL CANCER
     Route: 041
     Dates: start: 20080801, end: 20080801
  21. ELPLAT [Suspect]
     Indication: COLORECTAL CANCER
     Route: 041
     Dates: start: 20080815, end: 20080815
  22. LEUCOVORIN [Suspect]
     Indication: COLORECTAL CANCER
     Route: 041
  23. AVASTIN [Suspect]
     Indication: COLORECTAL CANCER
     Route: 065
     Dates: start: 20080328, end: 20080328
  24. AVASTIN [Suspect]
     Indication: COLORECTAL CANCER
     Route: 065
     Dates: start: 20080425, end: 20080425
  25. AVASTIN [Suspect]
     Indication: COLORECTAL CANCER
     Route: 065
     Dates: end: 20080815
  26. AVASTIN [Suspect]
     Indication: COLORECTAL CANCER
     Route: 065
     Dates: start: 20080411, end: 20080411
  27. CALCIUM LEVOFOLINATE [Concomitant]
     Dates: start: 20080328, end: 20080815
  28. GRANISETRON [Concomitant]
     Dates: start: 20080328, end: 20080815
  29. DEXART [Concomitant]
     Dates: start: 20080328, end: 20080815
  30. SODIUM GUALENATE [Concomitant]
     Dosage: MOUTHWASH
     Dates: start: 20080425, end: 20081121
  31. DEXALTIN [Concomitant]
     Dates: start: 20080509, end: 20081024
  32. BESACOLIN [Concomitant]
     Dosage: POWDER EXCEPT DPO
     Dates: start: 20081028
  33. TAMSULOSIN HYDROCHLORIDE [Concomitant]
     Dates: start: 20081028
  34. MUCOSOLVAN [Concomitant]
     Dates: start: 20081212, end: 20081230
  35. BAKTAR [Concomitant]
     Dates: start: 20081222, end: 20081230
  36. MEROPEN [Concomitant]
     Dates: start: 20081216, end: 20081225
  37. MINOCYCLINE HYDROCHLORIDE [Concomitant]
     Dates: start: 20081216, end: 20081225
  38. PREDONINE [Concomitant]
     Dates: start: 20081222, end: 20090124
  39. PREDONINE [Concomitant]
     Dates: start: 20090125, end: 20090125
  40. SOLU-MEDROL [Concomitant]
     Dates: start: 20090108, end: 20090110
  41. CEFTAZIDIME [Concomitant]
     Dates: start: 20090116, end: 20090119
  42. FUNGUARD [Concomitant]
     Dates: start: 20090119, end: 20090125
  43. TIENAM [Concomitant]
     Dates: start: 20090119, end: 20090122
  44. DALACIN-S [Concomitant]
     Dates: start: 20090123, end: 20090125
  45. CIPROX [Concomitant]
     Dates: start: 20090123, end: 20090125
  46. ROPION [Concomitant]
     Dates: start: 20090124, end: 20090125
  47. GASTER [Concomitant]
     Dates: start: 20090124, end: 20090125
  48. TRANSAMIN [Concomitant]
     Dates: start: 20090124, end: 20090125
  49. MORPHINE HYDROCHLORIDE [Concomitant]
     Dates: start: 20090124, end: 20090125
  50. MIDAZOLAM [Concomitant]
     Dates: start: 20090125, end: 20090125
  51. CRAVIT [Concomitant]
     Dates: start: 20081205
  52. CLARITHROMYCIN [Concomitant]
     Dates: start: 20081212

REACTIONS (7)
  - Respiratory failure [Fatal]
  - Interstitial lung disease [Fatal]
  - Peripheral sensory neuropathy [Unknown]
  - Neuropathy peripheral [Not Recovered/Not Resolved]
  - Malaise [Recovered/Resolved]
  - Decreased appetite [Recovered/Resolved]
  - Stomatitis [Recovered/Resolved]
